FAERS Safety Report 23485134 (Version 1)
Quarter: 2024Q1

REPORT INFORMATION
  Report Type: Spontaneous
  Country: US (occurrence: US)
  Receive Date: 20240206
  Receipt Date: 20240206
  Transmission Date: 20240409
  Serious: No
  Sender: FDA-Public Use
  Company Number: US-SA-SAC20240127000451

PATIENT
  Sex: Male
  Weight: 120.2 kg

DRUGS (1)
  1. DUPIXENT [Suspect]
     Active Substance: DUPILUMAB
     Indication: Dermatitis atopic
     Dosage: 300 MG, QOW
     Route: 058
     Dates: start: 20230706

REACTIONS (7)
  - Eczema [Unknown]
  - Pruritus [Unknown]
  - Pain of skin [Unknown]
  - Dry skin [Unknown]
  - Skin fissures [Unknown]
  - Therapeutic response shortened [Unknown]
  - Product dose omission issue [Unknown]
